FAERS Safety Report 16653421 (Version 3)
Quarter: 2020Q2

REPORT INFORMATION
  Report Type: Spontaneous
  Country: US (occurrence: US)
  Receive Date: 20190731
  Receipt Date: 20200529
  Transmission Date: 20200713
  Serious: Yes (Other)
  Sender: FDA-Public Use
  Company Number: US-GILEAD-2019-0420461

PATIENT
  Age: 39 Year
  Sex: Female

DRUGS (24)
  1. ATRIPLA [Suspect]
     Active Substance: EFAVIRENZ\EMTRICITABINE\TENOFOVIR DISOPROXIL FUMARATE
     Indication: HIV INFECTION
     Dosage: UNK
     Route: 048
     Dates: start: 200503, end: 200712
  2. ATORVASTATIN [Concomitant]
     Active Substance: ATORVASTATIN
  3. BIOTIN [Concomitant]
     Active Substance: BIOTIN
  4. ZIAGEN [Concomitant]
     Active Substance: ABACAVIR SULFATE
  5. IBUPROFEN. [Concomitant]
     Active Substance: IBUPROFEN
  6. VIREAD [Suspect]
     Active Substance: TENOFOVIR DISOPROXIL FUMARATE
     Indication: HIV INFECTION
     Dosage: UNK
     Route: 048
     Dates: start: 200301, end: 200401
  7. TOPROL XL [Concomitant]
     Active Substance: METOPROLOL SUCCINATE
  8. ZOFEN [IBUPROFEN] [Concomitant]
  9. ZOVIRAX [Concomitant]
     Active Substance: ACYCLOVIR
  10. LIPITOR [Concomitant]
     Active Substance: ATORVASTATIN CALCIUM
  11. ZADITOR [KETOTIFEN] [Concomitant]
  12. FLUCONAZOLE. [Concomitant]
     Active Substance: FLUCONAZOLE
  13. NORVIR [Concomitant]
     Active Substance: RITONAVIR
  14. ASPIRIN [ACETYLSALICYLIC ACID] [Concomitant]
     Active Substance: ASPIRIN
  15. PLAVIX [Concomitant]
     Active Substance: CLOPIDOGREL BISULFATE
  16. DESYREL [Concomitant]
     Active Substance: TRAZODONE HYDROCHLORIDE
  17. CLOPIDOGREL [Concomitant]
     Active Substance: CLOPIDOGREL BISULFATE
  18. RETIN-A [Concomitant]
     Active Substance: TRETINOIN
  19. KENALOG [Concomitant]
     Active Substance: TRIAMCINOLONE ACETONIDE
  20. LISINOPRIL. [Concomitant]
     Active Substance: LISINOPRIL
  21. PREZCOBIX [Concomitant]
     Active Substance: COBICISTAT\DARUNAVIR ETHANOLATE
  22. VIREAD [Suspect]
     Active Substance: TENOFOVIR DISOPROXIL FUMARATE
     Dosage: UNK
     Route: 065
     Dates: start: 20110823, end: 20160920
  23. EPIVIR [Concomitant]
     Active Substance: LAMIVUDINE
  24. EPZICOM [Concomitant]
     Active Substance: ABACAVIR SULFATE\LAMIVUDINE

REACTIONS (8)
  - Pain [Unknown]
  - Emotional distress [Unknown]
  - Anxiety [Unknown]
  - Anhedonia [Unknown]
  - Economic problem [Unknown]
  - Chronic kidney disease [Not Recovered/Not Resolved]
  - Bone loss [Unknown]
  - Osteonecrosis [Not Recovered/Not Resolved]

NARRATIVE: CASE EVENT DATE: 20120621
